FAERS Safety Report 25422301 (Version 1)
Quarter: 2025Q2

REPORT INFORMATION
  Report Type: Spontaneous
  Country: US (occurrence: None)
  Receive Date: 20250610
  Receipt Date: 20250610
  Transmission Date: 20250716
  Serious: Yes (Other)
  Sender: FDA-CTU
  Company Number: None

PATIENT
  Age: 38 Year
  Sex: Female

DRUGS (1)
  1. AMJEVITA [Suspect]
     Active Substance: ADALIMUMAB-ATTO
     Indication: Noninfective chorioretinitis
     Dosage: 40MG WEEKLY ?

REACTIONS (4)
  - Chest pain [None]
  - Dyspnoea [None]
  - Pain [None]
  - Headache [None]
